FAERS Safety Report 20693639 (Version 1)
Quarter: 2022Q2

REPORT INFORMATION
  Report Type: Report from Study
  Country: US (occurrence: US)
  Receive Date: 20220411
  Receipt Date: 20220411
  Transmission Date: 20220720
  Serious: Yes (Hospitalization)
  Sender: FDA-Public Use
  Company Number: US-JNJFOC-20220406630

PATIENT
  Age: 59 Year
  Sex: Male
  Weight: 121.4 kg

DRUGS (3)
  1. SELEXIPAG [Suspect]
     Active Substance: SELEXIPAG
     Indication: Pulmonary hypertension
     Route: 048
  2. SILDENAFIL CITRATE [Concomitant]
     Active Substance: SILDENAFIL CITRATE
  3. BOSUTINIB [Concomitant]
     Active Substance: BOSUTINIB

REACTIONS (4)
  - Pulmonary oedema [Unknown]
  - Hypersensitivity [Unknown]
  - Renal disorder [Unknown]
  - Post-acute COVID-19 syndrome [Unknown]

NARRATIVE: CASE EVENT DATE: 20220115
